FAERS Safety Report 7030073-1 (Version None)
Quarter: 2010Q4

REPORT INFORMATION
  Report Type: 
  Country: None (occurrence: None)
  Receive Date: 20101006
  Receipt Date: 20100927
  Transmission Date: 20110411
  Serious: Yes (Hospitalization, Other)
  Sender: FDA-Public Use
  Company Number: DE-PFIZER INC-2010019826

PATIENT
  Age: 65 Year
  Sex: Female
  Weight: 54 kg

DRUGS (7)
  1. BLINDED *NO SUBJECT DRUG [Suspect]
     Indication: ADENOCARCINOMA
     Dosage: 25 MG, 1X/DAY
     Route: 048
     Dates: start: 20100201
  2. BLINDED *PLACEBO [Suspect]
     Indication: ADENOCARCINOMA
     Dosage: 25 MG, 1X/DAY
     Route: 048
     Dates: start: 20100201
  3. SUNITINIB MALATE [Suspect]
     Indication: ADENOCARCINOMA
     Dosage: 25 MG, 1X/DAY
     Route: 048
     Dates: start: 20100201
  4. IRINOTECAN [Suspect]
     Indication: ADENOCARCINOMA
     Dosage: 340 MG, EVERY 2 WEEKS
     Route: 042
     Dates: start: 20100201
  5. FLUOROURACIL [Suspect]
     Indication: ADENOCARCINOMA
     Dosage: 750 MG, EVERY 2 WEEKS
     Route: 040
     Dates: start: 20100201
  6. FLUOROURACIL [Suspect]
     Dosage: 3800 MG, EVERY 2 WEEKS
     Route: 042
     Dates: start: 20100201
  7. FOLINIC ACID [Suspect]
     Indication: ADENOCARCINOMA
     Dosage: 750 MG, EVERY 2 WEEKS
     Route: 042
     Dates: start: 20100201

REACTIONS (2)
  - DEHYDRATION [None]
  - VOMITING [None]
